FAERS Safety Report 4960672-X (Version None)
Quarter: 2006Q2

REPORT INFORMATION
  Report Type: 
  Country: None (occurrence: None)
  Receive Date: 20060403
  Receipt Date: 20051128
  Transmission Date: 20061013
  Serious: Yes (Death, Hospitalization, Other)
  Sender: FDA-Public Use
  Company Number: US-MERCK-0511USA04396

PATIENT
  Age: 54 Year
  Sex: Male
  Weight: 114 kg

DRUGS (15)
  1. VIOXX [Suspect]
     Indication: ARTHRITIS
     Route: 048
     Dates: start: 20020604, end: 20030318
  2. TYLENOL (CAPLET) [Concomitant]
     Indication: PAIN
     Route: 065
     Dates: end: 20030318
  3. ASPIRIN [Concomitant]
     Route: 065
     Dates: end: 20030318
  4. BACLOFEN [Concomitant]
     Indication: PAIN
     Route: 065
  5. PREVACID [Concomitant]
     Indication: HYPERCHLORHYDRIA
     Route: 065
  6. PREVACID [Concomitant]
     Indication: DYSPEPSIA
     Route: 065
  7. DIOVAN HCT [Concomitant]
     Indication: HYPERTENSION
     Route: 065
     Dates: start: 20021211, end: 20030318
  8. DITROPAN [Concomitant]
     Indication: INCONTINENCE
     Route: 065
  9. ZOCOR [Concomitant]
     Indication: HYPERCHOLESTEROLAEMIA
     Route: 065
     Dates: start: 20010820, end: 20030318
  10. ATENOLOL [Concomitant]
     Indication: HYPERTENSION
     Route: 065
     Dates: start: 20010820, end: 20030318
  11. SULFAMETHOXAZOLE AND TRIMETHOPRIM [Concomitant]
     Route: 065
  12. CIPRO [Concomitant]
     Route: 065
  13. METRONIDAZOLE [Concomitant]
     Route: 065
  14. ACETAMINOPHEN AND PROPOXYPHENE HYDROCHLORIDE [Concomitant]
     Route: 065
  15. ALEVE [Concomitant]
     Indication: PAIN
     Route: 065
     Dates: end: 20030318

REACTIONS (7)
  - ACUTE MYOCARDIAL INFARCTION [None]
  - ARTERIOSCLEROSIS CORONARY ARTERY [None]
  - CARDIAC FAILURE CONGESTIVE [None]
  - DIARRHOEA [None]
  - PULMONARY EMBOLISM [None]
  - URINARY TRACT INFECTION [None]
  - VENTRICULAR FIBRILLATION [None]
